FAERS Safety Report 5053083-2 (Version None)
Quarter: 2006Q3

REPORT INFORMATION
  Report Type: 
  Country: None (occurrence: None)
  Receive Date: 20060717
  Receipt Date: 20060707
  Transmission Date: 20061208
  Serious: Yes (Life-Threatening, Hospitalization)
  Sender: FDA-Public Use
  Company Number: GR-ABBOTT-06P-066-0337685-00

PATIENT
  Age: 23 Year
  Sex: Female

DRUGS (4)
  1. DEPAKENE [Suspect]
     Indication: EPILEPSY
     Route: 048
     Dates: start: 19920101
  2. DEPAKENE [Suspect]
     Indication: INTENTIONAL OVERDOSE
     Route: 048
     Dates: start: 20060625, end: 20060625
  3. DEPAKENE [Suspect]
     Route: 048
  4. LAMOTRIGINE [Concomitant]
     Indication: EPILEPSY
     Route: 048

REACTIONS (3)
  - INTENTIONAL OVERDOSE [None]
  - LYMPHOCYTOSIS [None]
  - SUICIDE ATTEMPT [None]
